FAERS Safety Report 6981732-8 (Version None)
Quarter: 2010Q3

REPORT INFORMATION
  Report Type: 
  Country: None (occurrence: None)
  Receive Date: 20100914
  Receipt Date: 20091026
  Transmission Date: 20110219
  Serious: No
  Sender: FDA-Public Use
  Company Number: US-PFIZER INC-2009269807

PATIENT
  Sex: Female
  Weight: 78 kg

DRUGS (3)
  1. LYRICA [Suspect]
     Indication: NERVE COMPRESSION
     Dosage: 75 MG, 1X/DAY
     Route: 048
     Dates: start: 20090827
  2. LORTAB [Concomitant]
     Indication: PAIN
     Dosage: 7.5MG
  3. ALBUTEROL [Concomitant]
     Indication: ASTHMA

REACTIONS (4)
  - LOCAL SWELLING [None]
  - OEDEMA PERIPHERAL [None]
  - SWELLING FACE [None]
  - THYROID DISORDER [None]
